FAERS Safety Report 24811343 (Version 1)
Quarter: 2025Q1

REPORT INFORMATION
  Report Type: Spontaneous
  Country: US (occurrence: US)
  Receive Date: 20250106
  Receipt Date: 20250106
  Transmission Date: 20250409
  Serious: Yes (Other)
  Sender: ADMA BIOLOGICS
  Company Number: US-ADMA BIOLOGICS INC.-US-2024ADM000216

PATIENT
  Age: 23 Year
  Sex: Male

DRUGS (2)
  1. HUMAN IMMUNOGLOBULIN G [Suspect]
     Active Substance: HUMAN IMMUNOGLOBULIN G
     Indication: Immunodeficiency common variable
     Route: 042
  2. SULFAMETHOXAZOLE\TRIMETHOPRIM [Concomitant]
     Active Substance: SULFAMETHOXAZOLE\TRIMETHOPRIM
     Indication: Prophylaxis
     Route: 065

REACTIONS (9)
  - Bronchiectasis [Unknown]
  - Fungal oesophagitis [Unknown]
  - Portal hypertension [Unknown]
  - Cytopenia [Unknown]
  - Activated PI3 kinase delta syndrome [Unknown]
  - Disease progression [Unknown]
  - Lymphoid tissue hyperplasia [Unknown]
  - Fibrosis [Unknown]
  - Tremor [Unknown]
